FAERS Safety Report 5579838-3 (Version None)
Quarter: 2008Q1

REPORT INFORMATION
  Report Type: 
  Country: None (occurrence: None)
  Receive Date: 20080102
  Receipt Date: 20071221
  Transmission Date: 20080703
  Serious: Yes (Death)
  Sender: FDA-Public Use
  Company Number: AU-GENENTECH-253514

PATIENT
  Sex: Female

DRUGS (2)
  1. HERCEPTIN [Suspect]
     Indication: DRUG USE FOR UNKNOWN INDICATION
  2. XELODA [Concomitant]
     Indication: DRUG USE FOR UNKNOWN INDICATION
     Dates: start: 20071108

REACTIONS (1)
  - MYOCARDIAL INFARCTION [None]
